FAERS Safety Report 4616932-5 (Version None)
Quarter: 2005Q1

REPORT INFORMATION
  Report Type: 
  Country: None (occurrence: None)
  Receive Date: 20050321
  Receipt Date: 20050308
  Transmission Date: 20050727
  Serious: Yes (Disabling)
  Sender: FDA-Public Use
  Company Number: 2005041918

PATIENT
  Age: 63 Year
  Sex: Female
  Weight: 89 kg

DRUGS (3)
  1. XALATAN [Suspect]
     Indication: ILL-DEFINED DISORDER
     Dosage: OPHTHALMIC
     Route: 047
     Dates: start: 20050208, end: 20050303
  2. DORZOLAMIDE (DORZOLAMIDE) [Concomitant]
  3. TIMOLOL MALEATE [Concomitant]

REACTIONS (4)
  - BLINDNESS UNILATERAL [None]
  - DERMATITIS EXFOLIATIVE [None]
  - EYE OEDEMA [None]
  - EYELID OEDEMA [None]
